FAERS Safety Report 9613500 (Version 1)
Quarter: 2013Q4

REPORT INFORMATION
  Report Type: Spontaneous
  Country: US (occurrence: US)
  Receive Date: 20131010
  Receipt Date: 20131010
  Transmission Date: 20140711
  Serious: Yes (Other)
  Sender: FDA-Public Use
  Company Number: CHPA2013US015354

PATIENT
  Age: 84 Year
  Sex: Male

DRUGS (2)
  1. BENEFIBER W/ WHEAT DEXTRIN [Suspect]
     Indication: FAECES HARD
     Dosage: UNK, UNK
     Route: 048
     Dates: start: 2008, end: 2012
  2. BENEFIBER W/ WHEAT DEXTRIN [Suspect]
     Indication: OFF LABEL USE

REACTIONS (2)
  - Skin cancer [Not Recovered/Not Resolved]
  - Therapeutic response unexpected [Unknown]
